FAERS Safety Report 7967583-6 (Version None)
Quarter: 2011Q4

REPORT INFORMATION
  Report Type: 
  Country: None (occurrence: None)
  Receive Date: 20111209
  Receipt Date: 20111202
  Transmission Date: 20120403
  Serious: Yes (Other)
  Sender: FDA-Public Use
  Company Number: NL-B.I. PHARMACEUTICALS,INC./RIDGEFIELD-2011-NL-00395NL

PATIENT
  Sex: Male
  Weight: 90 kg

DRUGS (3)
  1. MELOXICAM [Suspect]
     Dosage: 15 MG
  2. DIOVAN HCT [Suspect]
     Indication: BLOOD PRESSURE INCREASED
     Dosage: UNKNOWN
     Route: 048
     Dates: start: 19980101
  3. ASPIRIN [Suspect]
     Indication: CARDIAC DISCOMFORT
     Dosage: 80 MG
     Route: 048
     Dates: start: 19980101

REACTIONS (3)
  - RETROGRADE AMNESIA [None]
  - CONFUSIONAL STATE [None]
  - GAS POISONING [None]
